FAERS Safety Report 7425651-1 (Version None)
Quarter: 2011Q2

REPORT INFORMATION
  Report Type: 
  Country: None (occurrence: None)
  Receive Date: 20110420
  Receipt Date: 20110415
  Transmission Date: 20111010
  Serious: Yes (Other)
  Sender: FDA-Public Use
  Company Number: GB-NOVOPROD-325048

PATIENT
  Age: 77 Year
  Sex: Female
  Weight: 76.5 kg

DRUGS (7)
  1. ATORVASTATIN [Concomitant]
     Indication: PRODUCT USED FOR UNKNOWN INDICATION
     Dosage: UNK
     Dates: start: 20101001
  2. OMEPRAZOLE [Concomitant]
     Indication: PRODUCT USED FOR UNKNOWN INDICATION
     Dosage: UNK
     Dates: start: 20090101
  3. AMLODIPINE [Concomitant]
     Indication: PRODUCT USED FOR UNKNOWN INDICATION
     Dosage: UNK
     Dates: start: 20090101
  4. METFORMIN [Concomitant]
     Dosage: UNK
     Dates: start: 20070101
  5. EPROSARTAN [Concomitant]
     Indication: PRODUCT USED FOR UNKNOWN INDICATION
     Dosage: UNK
     Dates: start: 20070101
  6. LEVEMIR [Suspect]
     Indication: DIABETES MELLITUS
     Dosage: 20 IU, UNK
     Route: 058
     Dates: start: 20110111, end: 20110302
  7. SITAGLIPTIN [Concomitant]
     Indication: PRODUCT USED FOR UNKNOWN INDICATION
     Dosage: UNK
     Dates: start: 20090101

REACTIONS (4)
  - INJECTION SITE URTICARIA [None]
  - COUGH [None]
  - DRUG HYPERSENSITIVITY [None]
  - WHEEZING [None]
